FAERS Safety Report 24351073 (Version 1)
Quarter: 2024Q3

REPORT INFORMATION
  Report Type: Spontaneous
  Country: US (occurrence: None)
  Receive Date: 20240920
  Receipt Date: 20240920
  Transmission Date: 20241017
  Serious: Yes (Hospitalization)
  Sender: Public
  Company Number: None

PATIENT
  Sex: Female

DRUGS (4)
  1. SILDENAFIL CITRATE [Suspect]
     Active Substance: SILDENAFIL CITRATE
     Indication: Pulmonary hypertension
     Dosage: FREQUENCY : 3 TIMES A DAY;?
     Route: 048
     Dates: start: 202210
  2. FAMOTIDINE [Concomitant]
     Active Substance: FAMOTIDINE
  3. METOCLOPRAMIDE [Concomitant]
     Active Substance: METOCLOPRAMIDE
  4. OXYCODONE [Concomitant]
     Active Substance: OXYCODONE

REACTIONS (7)
  - Dyspnoea exertional [None]
  - Headache [None]
  - Nausea [None]
  - Abdominal discomfort [None]
  - Pain in extremity [None]
  - Fall [None]
  - Oxygen saturation decreased [None]
